FAERS Safety Report 11707237 (Version 5)
Quarter: 2016Q3

REPORT INFORMATION
  Report Type: Spontaneous
  Country: US (occurrence: US)
  Receive Date: 20151106
  Receipt Date: 20160721
  Transmission Date: 20161109
  Serious: No
  Sender: FDA-Public Use
  Company Number: US-009507513-1511USA003053

PATIENT
  Sex: Female
  Weight: 82.86 kg

DRUGS (5)
  1. CLONIDINE. [Suspect]
     Active Substance: CLONIDINE
     Indication: MOOD ALTERED
     Dosage: 0.2 MG, BID
     Route: 048
     Dates: end: 20151109
  2. DEPAKOTE [Suspect]
     Active Substance: DIVALPROEX SODIUM
     Indication: MOOD ALTERED
     Dosage: 125 MG, QD
     Route: 048
     Dates: end: 20151109
  3. NEXPLANON [Suspect]
     Active Substance: ETONOGESTREL
     Indication: CONTRACEPTION
     Dosage: UNK
     Route: 059
     Dates: start: 20150929, end: 20151109
  4. DEPAKOTE [Suspect]
     Active Substance: DIVALPROEX SODIUM
     Indication: BIPOLAR DISORDER
  5. CLONIDINE. [Suspect]
     Active Substance: CLONIDINE
     Indication: BIPOLAR DISORDER

REACTIONS (1)
  - Exposure during pregnancy [Recovered/Resolved]
